FAERS Safety Report 9663654 (Version 5)
Quarter: 2015Q3

REPORT INFORMATION
  Report Type: Report from Study
  Country: AR (occurrence: AR)
  Receive Date: 20131101
  Receipt Date: 20150717
  Transmission Date: 20151125
  Serious: Yes (Other)
  Sender: FDA-Public Use
  Company Number: PHHY2013AR123445

PATIENT
  Sex: Male

DRUGS (5)
  1. GALVUS [Suspect]
     Active Substance: VILDAGLIPTIN
     Indication: TYPE 2 DIABETES MELLITUS
     Dosage: 1 DF, QD
     Route: 048
     Dates: start: 2010, end: 2014
  2. DIOVAN [Suspect]
     Active Substance: VALSARTAN
     Indication: HYPERTENSION
     Dosage: 80 MG, BID (TABLET IN MORNING AND FILM COATED TABLET IN NIGHT)
     Route: 048
     Dates: end: 2014
  3. DIOVAN D [Suspect]
     Active Substance: HYDROCHLOROTHIAZIDE\VALSARTAN
     Indication: HYPERTENSION
     Dosage: 1 DF, QD
     Route: 048
  4. CORTISONE [Concomitant]
     Active Substance: CORTISONE\HYDROCORTISONE
     Indication: PRODUCT USED FOR UNKNOWN INDICATION
     Route: 065
  5. DIOVAN [Suspect]
     Active Substance: VALSARTAN
     Dosage: 1 DF, QD
     Route: 048

REACTIONS (14)
  - Hypovitaminosis [Unknown]
  - Pain [Unknown]
  - Hypersensitivity [Recovering/Resolving]
  - Spinal deformity [Unknown]
  - Dyspnoea [Not Recovered/Not Resolved]
  - Drug ineffective [Unknown]
  - Spinal disorder [Unknown]
  - Malaise [Unknown]
  - Allergy to animal [Unknown]
  - Blood pressure increased [Unknown]
  - Respiratory fatigue [Not Recovered/Not Resolved]
  - Cough [Unknown]
  - Asthma [Not Recovered/Not Resolved]
  - Lung disorder [Recovering/Resolving]
